FAERS Safety Report 11589381 (Version 1)
Quarter: 2015Q4

REPORT INFORMATION
  Report Type: Report from Study
  Country: US (occurrence: US)
  Receive Date: 20151002
  Receipt Date: 20151002
  Transmission Date: 20160304
  Serious: Yes (Hospitalization)
  Sender: FDA-Public Use
  Company Number: US-JNJFOC-20150925816

PATIENT
  Sex: Female
  Weight: 79.38 kg

DRUGS (2)
  1. METFORMIN [Concomitant]
     Active Substance: METFORMIN HYDROCHLORIDE
     Indication: PRODUCT USED FOR UNKNOWN INDICATION
     Route: 065
  2. INVOKAMET [Suspect]
     Active Substance: CANAGLIFLOZIN\METFORMIN HYDROCHLORIDE
     Indication: DIABETES MELLITUS
     Route: 048
     Dates: start: 2015

REACTIONS (5)
  - Fungal infection [Unknown]
  - Nephrolithiasis [Unknown]
  - Product difficult to swallow [Unknown]
  - Blood glucose fluctuation [Unknown]
  - Vomiting [Unknown]

NARRATIVE: CASE EVENT DATE: 2015
